FAERS Safety Report 5990076-2 (Version None)
Quarter: 2008Q4

REPORT INFORMATION
  Report Type: 
  Country: None (occurrence: None)
  Receive Date: 20081211
  Receipt Date: 20081203
  Transmission Date: 20090506
  Serious: Yes (Other)
  Sender: FDA-Public Use
  Company Number: BR-JNJFOC-20081201749

PATIENT
  Sex: Male

DRUGS (4)
  1. PREZISTA [Suspect]
     Indication: ACQUIRED IMMUNODEFICIENCY SYNDROME
     Route: 048
  2. TENOFOVIR [Concomitant]
     Indication: ACQUIRED IMMUNODEFICIENCY SYNDROME
  3. LAMIVUDINE [Concomitant]
     Indication: ACQUIRED IMMUNODEFICIENCY SYNDROME
  4. ENFURVITIDE [Concomitant]
     Indication: ACQUIRED IMMUNODEFICIENCY SYNDROME

REACTIONS (1)
  - PYREXIA [None]
